FAERS Safety Report 7023071-5 (Version None)
Quarter: 2010Q3

REPORT INFORMATION
  Report Type: 
  Country: None (occurrence: None)
  Receive Date: 20100930
  Receipt Date: 20100923
  Transmission Date: 20110219
  Serious: Yes (Hospitalization)
  Sender: FDA-Public Use
  Company Number: SE-PFIZER INC-2010115011

PATIENT
  Age: 84 Year
  Sex: Male
  Weight: 70.7 kg

DRUGS (6)
  1. BLINDED *NO SUBJECT DRUG [Suspect]
     Indication: CARDIAC FAILURE
     Dosage: UNK
     Route: 048
     Dates: start: 20080403
  2. BLINDED *PLACEBO [Suspect]
     Indication: CARDIAC FAILURE
     Dosage: UNK
     Route: 048
     Dates: start: 20080403
  3. BLINDED EPLERENONE [Suspect]
     Indication: CARDIAC FAILURE
     Dosage: UNK
     Route: 048
     Dates: start: 20080403
  4. FUROSEMIDE [Concomitant]
     Dosage: UNK
     Route: 048
     Dates: start: 20071005
  5. METOPROLOL [Concomitant]
     Dosage: UNK
     Route: 048
     Dates: start: 20090420
  6. ENALAPRIL [Concomitant]
     Dosage: UNK
     Route: 048
     Dates: start: 20090224

REACTIONS (1)
  - ANAEMIA [None]
